FAERS Safety Report 8465374-3 (Version None)
Quarter: 2012Q2

REPORT INFORMATION
  Report Type: 
  Country: None (occurrence: None)
  Receive Date: 20120323
  Receipt Date: 20110922
  Transmission Date: 20120825
  Serious: Yes (Other)
  Sender: FDA-Public Use
  Company Number: 163-21880-11093278

PATIENT
  Age: 86 Year
  Sex: Female
  Weight: 65.7716 kg

DRUGS (4)
  1. CARVEDILOL [Concomitant]
  2. ASPIRIN [Concomitant]
  3. REVLIMID [Suspect]
     Indication: MULTIPLE MYELOMA
     Dosage: 25 MG, DAILY X 21 DAYS Q 28 DAYS, PO
     Route: 048
     Dates: start: 20110401
  4. FLECAINIDE ACETATE [Concomitant]

REACTIONS (2)
  - STOMATITIS [None]
  - HYPERSENSITIVITY [None]
